FAERS Safety Report 25467346 (Version 1)
Quarter: 2025Q2

REPORT INFORMATION
  Report Type: Spontaneous
  Country: US (occurrence: None)
  Receive Date: 20250621
  Receipt Date: 20250621
  Transmission Date: 20250716
  Serious: No
  Sender: FDA-CTU
  Company Number: None

PATIENT

DRUGS (1)
  1. QULIPTA [Suspect]
     Active Substance: ATOGEPANT

REACTIONS (7)
  - Contusion [None]
  - Anxiety [None]
  - Communication disorder [None]
  - Irritability [None]
  - Tearfulness [None]
  - Fear [None]
  - Feeling abnormal [None]
